FAERS Safety Report 4643021-6 (Version None)
Quarter: 2005Q2

REPORT INFORMATION
  Report Type: 
  Country: None (occurrence: None)
  Receive Date: 20050421
  Receipt Date: 20050414
  Transmission Date: 20051028
  Serious: No
  Sender: FDA-Public Use
  Company Number: 2004AP06217

PATIENT
  Age: 57 Year
  Sex: Male
  Weight: 87 kg

DRUGS (3)
  1. IRESSA [Suspect]
     Indication: NON-SMALL CELL LUNG CANCER
     Dosage: 250 MG DAILY PO
     Route: 048
     Dates: start: 20041026, end: 20041118
  2. ACEDICON [Concomitant]
  3. SERETIDE ^ALLEN + HANBURYS LTD^ [Concomitant]

REACTIONS (1)
  - HEPATITIS TOXIC [None]
